FAERS Safety Report 7001357-8 (Version None)
Quarter: 2010Q3

REPORT INFORMATION
  Report Type: 
  Country: None (occurrence: None)
  Receive Date: 20100920
  Receipt Date: 20100701
  Transmission Date: 20110219
  Serious: No
  Sender: FDA-Public Use
  Company Number: US-ASTRAZENECA-2010SE30789

PATIENT
  Sex: Male
  Weight: 105.2 kg

DRUGS (1)
  1. SEROQUEL [Suspect]
     Indication: SLEEP DISORDER
     Route: 048
     Dates: start: 20010101

REACTIONS (2)
  - JOINT INJURY [None]
  - NECK INJURY [None]
